FAERS Safety Report 7134400-6 (Version None)
Quarter: 2010Q4

REPORT INFORMATION
  Report Type: 
  Country: None (occurrence: None)
  Receive Date: 20101203
  Receipt Date: 20101122
  Transmission Date: 20110411
  Serious: Yes (Other)
  Sender: FDA-Public Use
  Company Number: PHHY2010AU76781

PATIENT
  Sex: Female

DRUGS (6)
  1. ACLASTA [Suspect]
     Dosage: 5 MG
     Route: 042
     Dates: start: 20101102
  2. VIASVEA [Concomitant]
     Indication: HYPERTENSION
     Dosage: 150 MG
     Route: 048
     Dates: start: 20010101
  3. PRAVACHOL [Concomitant]
     Indication: DYSLIPIDAEMIA
     Dosage: 20 MG
     Route: 048
     Dates: start: 20010101
  4. SEROTONIN [Concomitant]
     Indication: CHRONIC OBSTRUCTIVE PULMONARY DISEASE
     Dosage: 250/ 125
     Dates: start: 20000101
  5. VENTOLIN [Concomitant]
     Dosage: UNK
     Dates: start: 20000101
  6. ENBREL [Concomitant]
     Dosage: 50
     Route: 048

REACTIONS (4)
  - BLOOD PRESSURE INCREASED [None]
  - CHILLS [None]
  - HYPERHIDROSIS [None]
  - PRESYNCOPE [None]
